FAERS Safety Report 25975981 (Version 1)
Quarter: 2025Q4

REPORT INFORMATION
  Report Type: Spontaneous
  Country: US (occurrence: US)
  Receive Date: 20251029
  Receipt Date: 20251029
  Transmission Date: 20260118
  Serious: No
  Sender: JOHNSON AND JOHNSON
  Company Number: US-JNJFOC-20251004363

PATIENT

DRUGS (1)
  1. CARVYKTI [Suspect]
     Active Substance: CILTACABTAGENE AUTOLEUCEL
     Indication: Product used for unknown indication
     Route: 065
     Dates: start: 20250930

REACTIONS (5)
  - Heart rate increased [Unknown]
  - Respiratory rate increased [Unknown]
  - Blood pressure decreased [Unknown]
  - Pain in extremity [Unknown]
  - Musculoskeletal chest pain [Unknown]
